FAERS Safety Report 5871401-X (Version None)
Quarter: 2008Q3

REPORT INFORMATION
  Report Type: 
  Country: None (occurrence: None)
  Receive Date: 20080905
  Receipt Date: 20080630
  Transmission Date: 20090109
  Serious: No
  Sender: FDA-Public Use
  Company Number: A0691005A

PATIENT
  Age: 53 Year
  Sex: Male
  Weight: 86.4 kg

DRUGS (3)
  1. REQUIP [Suspect]
     Indication: PERIODIC LIMB MOVEMENT DISORDER
     Dosage: 1MG AT NIGHT
     Route: 048
     Dates: start: 20070401, end: 20071025
  2. KLONOPIN [Suspect]
     Indication: DRUG USE FOR UNKNOWN INDICATION
     Route: 048
  3. CPAP [Concomitant]

REACTIONS (6)
  - DYSKINESIA [None]
  - FATIGUE [None]
  - INSOMNIA [None]
  - PARAESTHESIA [None]
  - SOMNAMBULISM [None]
  - WITHDRAWAL SYNDROME [None]
